FAERS Safety Report 9167104 (Version 3)
Quarter: 2013Q2

REPORT INFORMATION
  Report Type: Spontaneous
  Country: IL (occurrence: IL)
  Receive Date: 20130318
  Receipt Date: 20130624
  Transmission Date: 20140414
  Serious: Yes (Hospitalization)
  Sender: FDA-Public Use
  Company Number: IL-BIOGENIDEC-2013BI021453

PATIENT
  Age: 55 Year
  Sex: Female
  Weight: 84 kg

DRUGS (4)
  1. TYSABRI [Suspect]
     Indication: MULTIPLE SCLEROSIS
     Route: 042
     Dates: start: 20110627, end: 20130117
  2. TYSABRI [Suspect]
     Indication: MULTIPLE SCLEROSIS
     Dates: start: 20130527
  3. SOMATULINE AUTOGEL [Concomitant]
     Indication: PANCREATIC NEUROENDOCRINE TUMOUR
     Dates: start: 20101116
  4. PROVIGIL [Concomitant]

REACTIONS (6)
  - Chronic myeloid leukaemia [Unknown]
  - Leukocytosis [Unknown]
  - Blood alkaline phosphatase increased [Unknown]
  - Pelvic pain [Unknown]
  - Gait disturbance [Unknown]
  - Pyrexia [Recovered/Resolved]
